FAERS Safety Report 5214136-9 (Version None)
Quarter: 2007Q1

REPORT INFORMATION
  Report Type: 
  Country: None (occurrence: None)
  Receive Date: 20070122
  Receipt Date: 20070115
  Transmission Date: 20070707
  Serious: Yes (Other)
  Sender: FDA-Public Use
  Company Number: PHBS2007JP01060

PATIENT

DRUGS (1)
  1. SANDIMMUNE [Suspect]
     Indication: HEPATITIS B
     Dosage: 0.25 MG/KG
     Route: 041

REACTIONS (1)
  - BLOOD CREATINE PHOSPHOKINASE INCREASED [None]
